FAERS Safety Report 20498995 (Version 1)
Quarter: 2022Q1

REPORT INFORMATION
  Report Type: Report from Study
  Country: US (occurrence: US)
  Receive Date: 20220222
  Receipt Date: 20220222
  Transmission Date: 20220423
  Serious: Yes (Other)
  Sender: FDA-Public Use
  Company Number: US-BIOVITRUM-2021US10782

PATIENT
  Age: 45 Year
  Sex: Female

DRUGS (1)
  1. KINERET [Suspect]
     Active Substance: ANAKINRA
     Indication: Monoclonal gammopathy
     Route: 058
     Dates: start: 20201023

REACTIONS (13)
  - Anaphylactic reaction [Unknown]
  - Lymphadenitis [Unknown]
  - Bone pain [Unknown]
  - Pain [Unknown]
  - Heart rate increased [Recovering/Resolving]
  - Postural orthostatic tachycardia syndrome [Unknown]
  - Lactose intolerance [Unknown]
  - Influenza [Unknown]
  - Urinary tract infection [Unknown]
  - Drug hypersensitivity [Unknown]
  - Urticaria [Unknown]
  - Product dose omission issue [Unknown]
  - Off label use [Not Recovered/Not Resolved]

NARRATIVE: CASE EVENT DATE: 20201023
